FAERS Safety Report 16901761 (Version 1)
Quarter: 2019Q4

REPORT INFORMATION
  Report Type: Report from Study
  Country: None (occurrence: CA)
  Receive Date: 20191010
  Receipt Date: 20191010
  Transmission Date: 20200122
  Serious: Yes (Hospitalization)
  Sender: FDA-Public Use
  Company Number: CA-ABBVIE-19K-028-2955108-00

PATIENT
  Sex: Female

DRUGS (3)
  1. HUMIRA [Suspect]
     Active Substance: ADALIMUMAB
     Route: 058
  2. HUMIRA [Suspect]
     Active Substance: ADALIMUMAB
     Indication: COLITIS ULCERATIVE
     Route: 058
     Dates: start: 20150312
  3. HUMIRA [Suspect]
     Active Substance: ADALIMUMAB
     Route: 058

REACTIONS (15)
  - Haematemesis [Unknown]
  - Constipation [Not Recovered/Not Resolved]
  - Colitis ulcerative [Unknown]
  - Hair texture abnormal [Unknown]
  - Abdominal discomfort [Unknown]
  - Abdominal distension [Unknown]
  - Alopecia [Not Recovered/Not Resolved]
  - Arthralgia [Unknown]
  - Tenderness [Unknown]
  - Frequent bowel movements [Unknown]
  - Tremor [Unknown]
  - Aphthous ulcer [Unknown]
  - Pain in extremity [Unknown]
  - Mass [Unknown]
  - Eye contusion [Unknown]

NARRATIVE: CASE EVENT DATE: 2019
